FAERS Safety Report 21236126 (Version 2)
Quarter: 2022Q3

REPORT INFORMATION
  Report Type: Report from Study
  Country: US (occurrence: US)
  Receive Date: 20220822
  Receipt Date: 20220915
  Transmission Date: 20221026
  Serious: Yes (Other)
  Sender: FDA-Public Use
  Company Number: US-BRISTOL-MYERS SQUIBB COMPANY-2022-088025

PATIENT
  Age: 43 Year
  Sex: Female
  Weight: 94.08 kg

DRUGS (7)
  1. ZEPOSIA [Suspect]
     Active Substance: OZANIMOD HYDROCHLORIDE
     Indication: Multiple sclerosis
     Route: 048
     Dates: start: 20210810
  2. PROZAC [Concomitant]
     Active Substance: FLUOXETINE HYDROCHLORIDE
     Indication: Product used for unknown indication
     Route: 065
  3. VITAMINS NOS [Concomitant]
     Active Substance: VITAMINS
     Indication: Product used for unknown indication
     Route: 065
  4. TYLENOL [Concomitant]
     Active Substance: ACETAMINOPHEN
     Indication: Product used for unknown indication
     Route: 065
  5. SUMATRIPTAN [Concomitant]
     Active Substance: SUMATRIPTAN
     Indication: Product used for unknown indication
     Route: 065
  6. VITAMIN D2 [Concomitant]
     Active Substance: ERGOCALCIFEROL
     Indication: Product used for unknown indication
     Route: 065
  7. Pfizer COVID (12Y UP) VAC (EUA) [Concomitant]
     Indication: Product used for unknown indication
     Route: 065

REACTIONS (9)
  - Ankle fracture [Unknown]
  - Tooth disorder [Unknown]
  - Depression [Unknown]
  - Arthropathy [Unknown]
  - Procedural pain [Unknown]
  - Hypoaesthesia [Unknown]
  - Fatigue [Unknown]
  - Anxiety [Unknown]
  - Stress at work [Unknown]

NARRATIVE: CASE EVENT DATE: 20210801
